FAERS Safety Report 8044236-X (Version None)
Quarter: 2012Q1

REPORT INFORMATION
  Report Type: 
  Country: None (occurrence: None)
  Receive Date: 20120113
  Receipt Date: 20111121
  Transmission Date: 20120608
  Serious: Yes (Other)
  Sender: FDA-Public Use
  Company Number: FR-EISAI INC-E3810-05116-SPO-FR

PATIENT
  Sex: Female

DRUGS (9)
  1. ATENOLOL [Concomitant]
  2. ACETAMINOPHEN [Concomitant]
  3. ASPIRIN [Concomitant]
  4. REOPRO [Concomitant]
  5. CLOPIDOGREL [Concomitant]
  6. PREDNISONE [Concomitant]
  7. RABEPRAZOLE SODIUM [Suspect]
     Indication: ILL-DEFINED DISORDER
     Dosage: UNKNOWN
     Route: 048
  8. CALCIUM CARBONATE [Concomitant]
  9. HEPARIN [Concomitant]

REACTIONS (2)
  - THROMBOCYTOPENIA [None]
  - UPPER GASTROINTESTINAL HAEMORRHAGE [None]
